FAERS Safety Report 5256925-0 (Version None)
Quarter: 2007Q1

REPORT INFORMATION
  Report Type: 
  Country: None (occurrence: None)
  Receive Date: 20070305
  Receipt Date: 20070305
  Transmission Date: 20070707
  Serious: Yes (Other)
  Sender: FDA-Public Use
  Company Number: None

PATIENT
  Age: 17 Year
  Sex: Female
  Weight: 74.8435 kg

DRUGS (1)
  1. ACCUTANE [Suspect]
     Indication: ACNE CYSTIC
     Dosage: 2X A DAY 40 MG PO
     Route: 048
     Dates: start: 19931101, end: 19940515

REACTIONS (11)
  - ARTHRALGIA [None]
  - BACK PAIN [None]
  - BLOOD GLUCOSE ABNORMAL [None]
  - BONE PAIN [None]
  - EPSTEIN-BARR VIRUS INFECTION [None]
  - HYPERSENSITIVITY [None]
  - IMMUNE SYSTEM DISORDER [None]
  - IRRITABLE BOWEL SYNDROME [None]
  - JAUNDICE [None]
  - LIVER DISORDER [None]
  - PALPITATIONS [None]
